FAERS Safety Report 9634534 (Version 2)
Quarter: 2013Q4

REPORT INFORMATION
  Report Type: Spontaneous
  Country: US (occurrence: US)
  Receive Date: 20131021
  Receipt Date: 20131021
  Transmission Date: 20140711
  Serious: No
  Sender: FDA-Public Use
  Company Number: US-PURDUE-USA-2013-0100914

PATIENT
  Age: 85 Year
  Sex: Female

DRUGS (3)
  1. BUTRANS [Suspect]
     Indication: PAIN
     Dosage: 10 MCG/HR, UNK
     Route: 062
     Dates: start: 20130304
  2. BUTRANS [Suspect]
     Dosage: 20 MCG/HR, UNK
     Route: 062
     Dates: start: 20130326, end: 20130329
  3. VICODIN [Concomitant]
     Indication: BREAKTHROUGH PAIN

REACTIONS (5)
  - Incoherent [Recovered/Resolved]
  - Heart rate increased [Unknown]
  - Memory impairment [Unknown]
  - Respiratory distress [Recovered/Resolved]
  - Fatigue [Recovered/Resolved]
